FAERS Safety Report 5807616-6 (Version None)
Quarter: 2008Q3

REPORT INFORMATION
  Report Type: 
  Country: None (occurrence: None)
  Receive Date: 20080711
  Receipt Date: 20080704
  Transmission Date: 20090109
  Serious: Yes (Death, Hospitalization)
  Sender: FDA-Public Use
  Company Number: FR-SANOFI-SYNTHELABO-A02200802098

PATIENT
  Sex: Male

DRUGS (11)
  1. KARDEGIC [Interacting]
     Indication: CORONARY ANGIOPLASTY
     Route: 048
     Dates: start: 20080301, end: 20080405
  2. KARDEGIC [Interacting]
     Route: 048
     Dates: start: 20080406, end: 20080424
  3. PLAVIX [Suspect]
     Indication: CORONARY ANGIOPLASTY
     Route: 048
     Dates: start: 20080313, end: 20080405
  4. PLAVIX [Interacting]
     Route: 048
     Dates: start: 20080406, end: 20080424
  5. LACTULOSE [Concomitant]
     Indication: CONSTIPATION
     Route: 065
     Dates: end: 20080405
  6. SERC [Concomitant]
     Indication: DRUG USE FOR UNKNOWN INDICATION
     Dosage: UNK
     Route: 048
     Dates: end: 20080405
  7. OMEPRAZOLE [Concomitant]
     Indication: ABDOMINAL PAIN UPPER
     Route: 048
  8. CRESTOR [Concomitant]
     Indication: DRUG USE FOR UNKNOWN INDICATION
     Route: 048
  9. OLMETEC [Concomitant]
     Indication: DRUG USE FOR UNKNOWN INDICATION
     Route: 048
  10. AMIODARONE HCL [Concomitant]
     Indication: DRUG USE FOR UNKNOWN INDICATION
     Route: 048
  11. FLUOXETINE [Interacting]
     Indication: DRUG USE FOR UNKNOWN INDICATION
     Route: 048

REACTIONS (5)
  - ANAEMIA [None]
  - BENIGN PROSTATIC HYPERPLASIA [None]
  - DRUG INTERACTION [None]
  - GASTRIC CANCER [None]
  - GASTRIC HAEMORRHAGE [None]
